FAERS Safety Report 7741006-4 (Version None)
Quarter: 2011Q3

REPORT INFORMATION
  Report Type: 
  Country: None (occurrence: None)
  Receive Date: 20110909
  Receipt Date: 20110831
  Transmission Date: 20111222
  Serious: Yes (Other)
  Sender: FDA-Public Use
  Company Number: US-BAYER-2011-016519

PATIENT
  Sex: Female
  Weight: 95 kg

DRUGS (63)
  1. OMNISCAN [Suspect]
     Dosage: UNK, ONCE
     Dates: start: 20051101, end: 20051101
  2. GADOLINIUM IN UNSPECIFIED DRUG [Suspect]
     Dosage: UNK
     Dates: start: 20060419, end: 20060419
  3. ACTOS [Concomitant]
  4. EFFEXOR XR [Concomitant]
  5. CLONAZEPAM [Concomitant]
  6. OXYCODONE HCL [Concomitant]
  7. CEFADROXIL [Concomitant]
  8. PARACETAMOL W/TRAMADOL HYDROCHLORIDE [Concomitant]
  9. FLUCONAZOLE [Concomitant]
  10. OMNISCAN [Suspect]
     Dosage: UNK
     Dates: start: 20060203, end: 20060203
  11. TORSEMIDE [Concomitant]
  12. CARVEDILOL [Concomitant]
  13. LASIX [Concomitant]
  14. ENOXAPARIN [Concomitant]
  15. PIOGLITAZONE [Concomitant]
  16. XOPENEX [Concomitant]
  17. OMNISCAN [Suspect]
     Indication: IMAGING PROCEDURE
     Dosage: UNK UNK, ONCE
     Dates: start: 20050420, end: 20050420
  18. METFORMIN [Concomitant]
  19. AMOXICILLIN [Concomitant]
  20. VALSARTAN [Concomitant]
  21. MORPHINE SULFATE [Concomitant]
  22. NITROFURANTOIN [Concomitant]
  23. LUNESTA [Concomitant]
  24. OMNISCAN [Suspect]
     Dosage: UNK, ONCE
     Dates: start: 20051220, end: 20051220
  25. GADOLINIUM IN UNSPECIFIED DRUG [Suspect]
     Indication: NUCLEAR MAGNETIC RESONANCE IMAGING
     Dosage: UNK UNK, ONCE
     Dates: start: 20050817, end: 20050817
  26. FLAGYL [Concomitant]
  27. PROMETHAZINE [Concomitant]
  28. CEPHALEXIN [Concomitant]
  29. HYDROCODONE/GUAIFENESIN [Concomitant]
  30. CEFUROXIME [Concomitant]
  31. CARDIZEM LA [Concomitant]
  32. AMBIEN [Concomitant]
  33. NPH INSULIN [Concomitant]
  34. ALBUTEROL SULFATE AUTOHALER [Concomitant]
  35. OMNISCAN [Suspect]
     Dosage: UNK, ONCE
     Dates: start: 20050818, end: 20050818
  36. GADOLINIUM IN UNSPECIFIED DRUG [Suspect]
     Dosage: UNK
     Dates: start: 20060505, end: 20060505
  37. GLYBURIDE [Concomitant]
  38. INSULIN [Concomitant]
  39. GLUCOPHAGE [Concomitant]
  40. FENTANYL-100 [Concomitant]
  41. AMIODARONE HCL [Concomitant]
  42. CEFZIL [Concomitant]
  43. MEPROZINE [Concomitant]
  44. NIFEDIPINE [Concomitant]
  45. TIZANIDINE HCL [Concomitant]
  46. SUCRALFATE [Concomitant]
  47. GADOLINIUM IN UNSPECIFIED DRUG [Suspect]
     Indication: NUCLEAR MAGNETIC RESONANCE IMAGING BRAIN
     Dosage: UNK, ONCE
     Dates: start: 20060202, end: 20060202
  48. PRANDIN [Concomitant]
  49. GABAPENTIN [Concomitant]
  50. ETHYL CHLORIDE [Concomitant]
  51. LANTUS [Concomitant]
  52. VICODIN [Concomitant]
  53. CEFAZOLIN [Concomitant]
  54. LEVAQUIN [Concomitant]
  55. MICROLET [Concomitant]
  56. OPTIMARK [Suspect]
     Indication: IMAGING PROCEDURE
  57. HYDROCODONE BITARTRATE [Concomitant]
  58. ADVAIR DISKUS 100/50 [Concomitant]
  59. SERTRALINE HYDROCHLORIDE [Concomitant]
  60. DIGOXIN [Concomitant]
  61. TAMOXIFEN CITRATE [Concomitant]
  62. POTASSIUM CHLORIDE [Concomitant]
  63. BENZONATATE [Concomitant]

REACTIONS (10)
  - GENERAL PHYSICAL HEALTH DETERIORATION [None]
  - ERYTHEMA [None]
  - DEFORMITY [None]
  - HYPOAESTHESIA [None]
  - SKIN LESION [None]
  - NEPHROGENIC SYSTEMIC FIBROSIS [None]
  - PAIN IN EXTREMITY [None]
  - SCAR [None]
  - PAIN [None]
  - OEDEMA PERIPHERAL [None]
